FAERS Safety Report 19155985 (Version 1)
Quarter: 2021Q2

REPORT INFORMATION
  Report Type: Report from Study
  Country: None (occurrence: US)
  Receive Date: 20210420
  Receipt Date: 20210420
  Transmission Date: 20210717
  Serious: Yes (Hospitalization, Other)
  Sender: FDA-Public Use
  Company Number: US-ABBVIE-21K-163-3851201-00

PATIENT
  Age: 47 Year
  Sex: Male
  Weight: 56.75 kg

DRUGS (6)
  1. MERCAPTOPURINE. [Concomitant]
     Active Substance: MERCAPTOPURINE
     Indication: CROHN^S DISEASE
  2. FAMOTIDINE. [Concomitant]
     Active Substance: FAMOTIDINE
     Indication: INFECTION
  3. HUMIRA [Suspect]
     Active Substance: ADALIMUMAB
     Indication: CROHN^S DISEASE
     Route: 058
     Dates: start: 2016, end: 20210215
  4. VITAMIN D [Concomitant]
     Active Substance: VITAMIN D NOS
     Indication: SUPPLEMENTATION THERAPY
  5. DICYCLOMINE [Concomitant]
     Active Substance: DICYCLOMINE HYDROCHLORIDE
     Indication: ABDOMINAL PAIN UPPER
  6. MIRTAZAPINE. [Concomitant]
     Active Substance: MIRTAZAPINE
     Indication: DECREASED APPETITE

REACTIONS (10)
  - Gastrointestinal scarring [Unknown]
  - Adverse food reaction [Recovering/Resolving]
  - Weight decreased [Recovering/Resolving]
  - Oral infection [Recovering/Resolving]
  - Subcutaneous abscess [Recovering/Resolving]
  - Peripheral swelling [Unknown]
  - Intestinal obstruction [Recovered/Resolved]
  - Abdominal abscess [Recovered/Resolved]
  - White blood cell count increased [Recovered/Resolved]
  - Gastric infection [Recovered/Resolved]

NARRATIVE: CASE EVENT DATE: 202101
